FAERS Safety Report 7554867-9 (Version None)
Quarter: 2011Q2

REPORT INFORMATION
  Report Type: 
  Country: None (occurrence: None)
  Receive Date: 20110615
  Receipt Date: 20110615
  Transmission Date: 20111010
  Serious: No
  Sender: FDA-Public Use
  Company Number: None

PATIENT
  Sex: Female
  Weight: 62.1 kg

DRUGS (2)
  1. ETOPOSIDE [Suspect]
     Dosage: 498 MG
     Dates: end: 20110527
  2. CISPLATIN [Suspect]
     Dosage: 125 MG
     Dates: end: 20110525

REACTIONS (2)
  - NEUTROPHIL COUNT ABNORMAL [None]
  - WHITE BLOOD CELL COUNT ABNORMAL [None]
